FAERS Safety Report 7437976-4 (Version None)
Quarter: 2011Q2

REPORT INFORMATION
  Report Type: 
  Country: None (occurrence: None)
  Receive Date: 20110426
  Receipt Date: 20110415
  Transmission Date: 20111010
  Serious: Yes (Other)
  Sender: FDA-Public Use
  Company Number: JP-ASTRAZENECA-2011SE16559

PATIENT
  Age: 54 Year
  Sex: Female

DRUGS (21)
  1. PLAVIX [Concomitant]
  2. LOXONIN [Concomitant]
  3. SEROQUEL [Suspect]
     Route: 048
  4. GASMOTIN [Concomitant]
  5. TRANSAMIN [Concomitant]
  6. SINGULAIR [Concomitant]
  7. CYTOTEC [Concomitant]
  8. SOLANTAL [Concomitant]
  9. TAKEPRON [Concomitant]
  10. DIAZEPAM [Concomitant]
  11. ROHYPNOL [Concomitant]
  12. RISUMIC [Concomitant]
  13. MAGLAX [Concomitant]
  14. OPALMON [Concomitant]
  15. ANAFRANIL [Concomitant]
  16. METLIGINE [Concomitant]
     Route: 048
  17. MUCOSOLVAN [Concomitant]
  18. AKINETON [Concomitant]
  19. DEPAS [Concomitant]
  20. THEO-DUR [Concomitant]
  21. CLEANAL [Concomitant]

REACTIONS (1)
  - POLYDIPSIA PSYCHOGENIC [None]
